FAERS Safety Report 8193830-4 (Version None)
Quarter: 2012Q1

REPORT INFORMATION
  Report Type: 
  Country: None (occurrence: None)
  Receive Date: 20120308
  Receipt Date: 20120229
  Transmission Date: 20120608
  Serious: Yes (Life-Threatening, Hospitalization, Other)
  Sender: FDA-Public Use
  Company Number: TR-BAXTER-2012BH006228

PATIENT
  Age: 43 Year
  Sex: Male
  Weight: 90 kg

DRUGS (3)
  1. GAMMAGARD LIQUID [Suspect]
     Indication: OFF LABEL USE
     Route: 042
     Dates: start: 20120228, end: 20120228
  2. CIPRO [Concomitant]
     Indication: PRODUCT USED FOR UNKNOWN INDICATION
     Route: 065
  3. GAMMAGARD LIQUID [Suspect]
     Indication: GUILLAIN-BARRE SYNDROME
     Route: 042
     Dates: start: 20120228, end: 20120228

REACTIONS (4)
  - ANGIOEDEMA [None]
  - PYREXIA [None]
  - CHILLS [None]
  - HYPERSENSITIVITY [None]
